FAERS Safety Report 13284522 (Version 1)
Quarter: 2017Q1

REPORT INFORMATION
  Report Type: Report from Study
  Country: FR (occurrence: FR)
  Receive Date: 20170301
  Receipt Date: 20170301
  Transmission Date: 20170428
  Serious: Yes (Death, Other)
  Sender: FDA-Public Use
  Company Number: FR-IPCA LABORATORIES LIMITED-IPC201702-000042

PATIENT
  Age: 7 Year
  Sex: Female

DRUGS (18)
  1. CLONIDINE. [Suspect]
     Active Substance: CLONIDINE
  2. GENTAMICIN. [Suspect]
     Active Substance: GENTAMICIN
  3. BACLOFEN. [Suspect]
     Active Substance: BACLOFEN
  4. LEVOSALBUTAMOL [Suspect]
     Active Substance: LEVALBUTEROL
  5. LEVITRACETAM 100MG/ML [Suspect]
     Active Substance: LEVETIRACETAM
  6. DIAZEPAM. [Suspect]
     Active Substance: DIAZEPAM
  7. RANITIDINE. [Suspect]
     Active Substance: RANITIDINE
  8. TRANXENE T-TAB [Suspect]
     Active Substance: CLORAZEPATE DIPOTASSIUM
  9. IPRATROPIUM [Suspect]
     Active Substance: IPRATROPIUM
  10. VALPROIC ACID. [Suspect]
     Active Substance: VALPROIC ACID
  11. IBUPROFEN. [Suspect]
     Active Substance: IBUPROFEN
  12. METOCLOPRAMIDE HYDROCHLORIDE. [Suspect]
     Active Substance: METOCLOPRAMIDE HYDROCHLORIDE
  13. PARACETAMOL [Suspect]
     Active Substance: ACETAMINOPHEN
  14. BOTOX [Suspect]
     Active Substance: ONABOTULINUMTOXINA
     Indication: CEREBRAL PALSY
  15. GABAPENTIN. [Suspect]
     Active Substance: GABAPENTIN
  16. LACTULOSE. [Suspect]
     Active Substance: LACTULOSE
  17. BUDESONIDE. [Suspect]
     Active Substance: BUDESONIDE
  18. CETIRIZINE [Suspect]
     Active Substance: CETIRIZINE HYDROCHLORIDE

REACTIONS (4)
  - Muscular weakness [Unknown]
  - Pneumonia [Unknown]
  - Death [Fatal]
  - Seizure [Unknown]
